FAERS Safety Report 17814791 (Version 1)
Quarter: 2020Q2

REPORT INFORMATION
  Report Type: Report from Study
  Country: US (occurrence: US)
  Receive Date: 20200522
  Receipt Date: 20200522
  Transmission Date: 20200714
  Serious: Yes (Death, Hospitalization, Other)
  Sender: FDA-Public Use
  Company Number: US-GLAXOSMITHKLINE-US2020AMR074879

PATIENT
  Age: 69 Year
  Sex: Male

DRUGS (4)
  1. NIRAPARIB [Suspect]
     Active Substance: NIRAPARIB
     Indication: ADRENAL NEOPLASM
     Dosage: 300 MG, QD
     Dates: start: 202005
  2. NIRAPARIB [Suspect]
     Active Substance: NIRAPARIB
     Indication: LUNG NEOPLASM MALIGNANT
  3. HYDROCODONE [Concomitant]
     Active Substance: HYDROCODONE
     Indication: PAIN
     Dosage: UNK
  4. NIRAPARIB [Suspect]
     Active Substance: NIRAPARIB
     Indication: PROSTATE CANCER
     Dosage: 300 MG, QD
     Dates: start: 20200421

REACTIONS (13)
  - Constipation [Unknown]
  - Mouth haemorrhage [Unknown]
  - Oral mucosal exfoliation [Unknown]
  - Epistaxis [Unknown]
  - Death [Fatal]
  - Fluid intake reduced [Unknown]
  - Stomatitis [Unknown]
  - Platelet count decreased [Unknown]
  - Increased viscosity of upper respiratory secretion [Unknown]
  - Dehydration [Unknown]
  - Oral blood blister [Unknown]
  - Productive cough [Unknown]
  - Off label use [Unknown]

NARRATIVE: CASE EVENT DATE: 20200519
